FAERS Safety Report 9131251 (Version 2)
Quarter: 2013Q2

REPORT INFORMATION
  Report Type: Spontaneous
  Country: JP (occurrence: JP)
  Receive Date: 20130301
  Receipt Date: 20130408
  Transmission Date: 20140414
  Serious: Yes (Other)
  Sender: FDA-Public Use
  Company Number: JP-SANOFI-AVENTIS-2013SA018313

PATIENT
  Age: 44 Year
  Sex: Male

DRUGS (3)
  1. LANTUS SOLOSTAR [Suspect]
     Indication: DIABETES MELLITUS
     Dosage: DOSE: 6 TO 8 IU/DAY
     Route: 058
     Dates: start: 20120330
  2. SOLOSTAR [Suspect]
     Indication: DEVICE THERAPY
     Dates: start: 20120330
  3. NOVORAPID [Suspect]
     Indication: DIABETES MELLITUS
     Route: 058
     Dates: start: 20120330

REACTIONS (9)
  - Vitamin B1 deficiency [Recovered/Resolved]
  - Memory impairment [Recovered/Resolved]
  - Altered state of consciousness [Recovered/Resolved]
  - Headache [Recovered/Resolved]
  - Diplopia [Recovered/Resolved]
  - Dizziness [Recovered/Resolved]
  - Gait disturbance [Recovered/Resolved]
  - Blood lactic acid increased [Recovered/Resolved]
  - Blood pyruvic acid increased [Recovered/Resolved]
